FAERS Safety Report 15979829 (Version 1)
Quarter: 2019Q1

REPORT INFORMATION
  Report Type: Spontaneous
  Country: GR (occurrence: GR)
  Receive Date: 20190219
  Receipt Date: 20190219
  Transmission Date: 20190418
  Serious: Yes (Other)
  Sender: FDA-Public Use
  Company Number: PHHY2019GR031001

PATIENT
  Age: 33 Year
  Sex: Male

DRUGS (3)
  1. COSENTYX [Suspect]
     Active Substance: SECUKINUMAB
     Indication: PSORIATIC ARTHROPATHY
  2. ISONIAZID. [Concomitant]
     Active Substance: ISONIAZID
     Indication: PROPHYLACTIC CHEMOTHERAPY
     Dosage: UNK
     Route: 065
  3. COSENTYX [Suspect]
     Active Substance: SECUKINUMAB
     Indication: PSORIASIS
     Dosage: UNK
     Route: 065

REACTIONS (3)
  - Neutrophil count decreased [Unknown]
  - Psoriasis [Unknown]
  - Oedema peripheral [Unknown]
